FAERS Safety Report 19348009 (Version 2)
Quarter: 2022Q2

REPORT INFORMATION
  Report Type: Spontaneous
  Country: US (occurrence: US)
  Receive Date: 20210531
  Receipt Date: 20220616
  Transmission Date: 20220721
  Serious: Yes (Other)
  Sender: FDA-Public Use
  Company Number: US-PURDUE-USA-2020-0190883

PATIENT
  Sex: Male

DRUGS (41)
  1. OXYCONTIN [Suspect]
     Active Substance: OXYCODONE HYDROCHLORIDE
     Indication: Product used for unknown indication
     Dosage: UNKNOWN
     Route: 048
  2. DILAUDID [Suspect]
     Active Substance: HYDROMORPHONE HYDROCHLORIDE
     Indication: Product used for unknown indication
     Dosage: UNKNOWN
     Route: 048
  3. MS CONTIN [Suspect]
     Active Substance: MORPHINE SULFATE
     Indication: Product used for unknown indication
     Dosage: UNKNOWN
     Route: 048
  4. MORPHINE SULFATE [Suspect]
     Active Substance: MORPHINE SULFATE
     Indication: Product used for unknown indication
     Dosage: UNKNOWN
     Route: 048
  5. OXYCODONE HYDROCHLORIDE [Suspect]
     Active Substance: OXYCODONE HYDROCHLORIDE
     Indication: Product used for unknown indication
     Dosage: UNKNOWN
     Route: 048
  6. OXYCODONE HYDROCHLORIDE [Suspect]
     Active Substance: OXYCODONE HYDROCHLORIDE
     Indication: Product used for unknown indication
     Dosage: UNKNOWN
     Route: 048
  7. OXYCODONE HYDROCHLORIDE [Suspect]
     Active Substance: OXYCODONE HYDROCHLORIDE
     Dosage: 5-10 MG Q4H PRN
     Route: 048
     Dates: start: 20170705, end: 20170706
  8. HYDROMORPHONE [Suspect]
     Active Substance: HYDROMORPHONE
     Indication: Product used for unknown indication
     Dosage: UNKNOWN
     Route: 048
  9. OXYCODONE HYDROCHLORIDE [Suspect]
     Active Substance: OXYCODONE HYDROCHLORIDE
     Indication: Pain
     Dosage: 2 DF, TID PRN
     Route: 048
     Dates: start: 20170922, end: 20171022
  10. OXYCODONE HYDROCHLORIDE [Suspect]
     Active Substance: OXYCODONE HYDROCHLORIDE
     Dosage: 2 DF, TID PRN
     Route: 048
     Dates: start: 20170824, end: 20170923
  11. OXYCODONE HYDROCHLORIDE [Suspect]
     Active Substance: OXYCODONE HYDROCHLORIDE
     Dosage: 2 DF, TID PRN
     Route: 048
     Dates: start: 20170728, end: 20170827
  12. OXYCODONE HYDROCHLORIDE [Suspect]
     Active Substance: OXYCODONE HYDROCHLORIDE
     Dosage: 2 DF, TID PRN
     Route: 048
     Dates: start: 20170725, end: 20170824
  13. OXYCODONE HYDROCHLORIDE [Suspect]
     Active Substance: OXYCODONE HYDROCHLORIDE
     Dosage: 2 DF, TID PRN
     Route: 048
     Dates: start: 20170714, end: 20170813
  14. OXYCODONE HYDROCHLORIDE [Suspect]
     Active Substance: OXYCODONE HYDROCHLORIDE
     Dosage: 2 DF, TID PRN
     Route: 048
     Dates: start: 20170707, end: 20170806
  15. OXYCODONE HYDROCHLORIDE [Suspect]
     Active Substance: OXYCODONE HYDROCHLORIDE
     Dosage: 2 DF, TID PRN
     Route: 048
     Dates: start: 20170630, end: 20170730
  16. OXYCODONE HYDROCHLORIDE [Suspect]
     Active Substance: OXYCODONE HYDROCHLORIDE
     Dosage: 1 DF, QID PRN
     Route: 048
     Dates: start: 20170623, end: 20170723
  17. OXYCODONE HYDROCHLORIDE [Suspect]
     Active Substance: OXYCODONE HYDROCHLORIDE
     Dosage: 1 DF, BID PRN
     Route: 048
     Dates: start: 20170612, end: 20170712
  18. OXYCODONE HYDROCHLORIDE [Suspect]
     Active Substance: OXYCODONE HYDROCHLORIDE
     Dosage: 2 DF, Q6H PRN
     Route: 048
     Dates: start: 20170216, end: 20170318
  19. OXYCODONE HYDROCHLORIDE [Suspect]
     Active Substance: OXYCODONE HYDROCHLORIDE
     Dosage: 2 DF, TID PRN
     Route: 048
     Dates: start: 20170123, end: 20170222
  20. OXYCODONE HYDROCHLORIDE [Suspect]
     Active Substance: OXYCODONE HYDROCHLORIDE
     Dosage: 2 DF, Q6H PRN
     Route: 048
     Dates: start: 20161222, end: 20170121
  21. OXYCODONE HYDROCHLORIDE [Suspect]
     Active Substance: OXYCODONE HYDROCHLORIDE
     Dosage: 2 DF, Q6H PRN
     Route: 048
     Dates: start: 20161129, end: 20161229
  22. OXYCODONE HYDROCHLORIDE [Suspect]
     Active Substance: OXYCODONE HYDROCHLORIDE
     Dosage: 2 DF, Q6H PRN
     Route: 048
     Dates: start: 20161101, end: 20161201
  23. OXYCODONE HYDROCHLORIDE [Suspect]
     Active Substance: OXYCODONE HYDROCHLORIDE
     Dosage: 2 DF, Q6H PRN
     Route: 048
     Dates: start: 20161005, end: 20161104
  24. OXYCODONE HYDROCHLORIDE [Suspect]
     Active Substance: OXYCODONE HYDROCHLORIDE
     Dosage: 2 DF, Q6H PRN
     Route: 048
     Dates: start: 20160906, end: 20161006
  25. OXYCODONE HYDROCHLORIDE [Suspect]
     Active Substance: OXYCODONE HYDROCHLORIDE
     Dosage: 2 DF, Q6H PRN
     Route: 048
     Dates: start: 20160811, end: 20160910
  26. OXYCODONE HYDROCHLORIDE [Suspect]
     Active Substance: OXYCODONE HYDROCHLORIDE
     Dosage: 2 DF, Q6H PRN
     Route: 048
     Dates: start: 20160722, end: 20160821
  27. OXYCODONE HYDROCHLORIDE [Suspect]
     Active Substance: OXYCODONE HYDROCHLORIDE
     Dosage: 2 DF, Q6H PRN
     Route: 048
     Dates: start: 20160613, end: 20160713
  28. OXYCODONE HYDROCHLORIDE [Suspect]
     Active Substance: OXYCODONE HYDROCHLORIDE
     Dosage: 2 DF, Q6H PRN
     Route: 048
     Dates: start: 20160517, end: 20160616
  29. HYDROCODONE BITARTRATE AND ACETAMINOPHEN [Suspect]
     Active Substance: ACETAMINOPHEN\HYDROCODONE BITARTRATE
     Indication: Pain
     Dosage: UNKNOWN
     Route: 048
  30. HYDROCODONE BITARTRATE AND ACETAMINOPHEN [Suspect]
     Active Substance: ACETAMINOPHEN\HYDROCODONE BITARTRATE
     Dosage: 5-325 MG Q6H PRN
     Route: 048
     Dates: start: 20180213, end: 20180315
  31. HYDROCODONE BITARTRATE AND ACETAMINOPHEN [Suspect]
     Active Substance: ACETAMINOPHEN\HYDROCODONE BITARTRATE
     Dosage: 5-325 MG Q6H PRN
     Route: 048
     Dates: start: 20180117, end: 20180216
  32. HYDROCODONE BITARTRATE AND ACETAMINOPHEN [Suspect]
     Active Substance: ACETAMINOPHEN\HYDROCODONE BITARTRATE
     Dosage: 5-325 MG, TAKE 1 TO 2 TABLETS Q4H PRN
     Route: 048
     Dates: start: 20170705, end: 20170804
  33. HYDROCODONE BITARTRATE AND ACETAMINOPHEN [Suspect]
     Active Substance: ACETAMINOPHEN\HYDROCODONE BITARTRATE
     Dosage: 10-325 MG Q6H PRN
     Route: 048
     Dates: start: 20170419, end: 20170517
  34. HYDROCODONE BITARTRATE AND ACETAMINOPHEN [Suspect]
     Active Substance: ACETAMINOPHEN\HYDROCODONE BITARTRATE
     Dosage: 10-325 MG Q6H PRN
     Route: 048
     Dates: start: 20170328, end: 20170427
  35. HYDROCODONE BITARTRATE AND ACETAMINOPHEN [Suspect]
     Active Substance: ACETAMINOPHEN\HYDROCODONE BITARTRATE
     Dosage: 10-325 MG Q6H PRN
     Route: 048
     Dates: start: 20170310, end: 20170409
  36. HYDROCODONE BITARTRATE AND ACETAMINOPHEN [Suspect]
     Active Substance: ACETAMINOPHEN\HYDROCODONE BITARTRATE
     Dosage: 10-325 MG Q6H PRN
     Route: 048
     Dates: start: 20170303, end: 20170402
  37. HYDROCODONE BITARTRATE AND ACETAMINOPHEN [Suspect]
     Active Substance: ACETAMINOPHEN\HYDROCODONE BITARTRATE
     Dosage: 5-500 MG Q6H PRN
     Route: 048
     Dates: start: 20021119, end: 20021123
  38. ACETAMINOPHEN\OXYCODONE HYDROCHLORIDE [Suspect]
     Active Substance: ACETAMINOPHEN\OXYCODONE HYDROCHLORIDE
     Indication: Product used for unknown indication
     Dosage: UNKNOWN
     Route: 048
  39. TRAMADOL [Suspect]
     Active Substance: TRAMADOL
     Indication: Product used for unknown indication
     Dosage: UNKNOWN
     Route: 048
  40. OXYCODONE HYDROCHLORIDE [Suspect]
     Active Substance: OXYCODONE HYDROCHLORIDE
     Indication: Product used for unknown indication
     Dosage: UNKNOWN
     Route: 065
  41. FENTANYL [Suspect]
     Active Substance: FENTANYL
     Indication: Pain
     Dosage: 25-100 MCG
     Route: 065
     Dates: start: 20170705, end: 20170706

REACTIONS (5)
  - Drug dependence [Unknown]
  - Disturbance in attention [Unknown]
  - Apathy [Unknown]
  - Amnesia [Unknown]
  - Sexual dysfunction [Unknown]
